FAERS Safety Report 7125797-1 (Version None)
Quarter: 2010Q4

REPORT INFORMATION
  Report Type: 
  Country: None (occurrence: None)
  Receive Date: 20101129
  Receipt Date: 20101125
  Transmission Date: 20110411
  Serious: Yes (Hospitalization)
  Sender: FDA-Public Use
  Company Number: B0686107A

PATIENT
  Age: 92 Year
  Sex: Female

DRUGS (2)
  1. AUGMENTIN [Suspect]
     Dosage: 3UNIT PER DAY
     Route: 048
     Dates: start: 20100923, end: 20101004
  2. VALACYCLOVIR HYDROCHLORIDE [Suspect]
     Route: 048
     Dates: start: 20100923, end: 20101004

REACTIONS (2)
  - DERMATITIS EXFOLIATIVE [None]
  - PRURITUS [None]
